FAERS Safety Report 6153210-X (Version None)
Quarter: 2009Q2

REPORT INFORMATION
  Report Type: 
  Country: None (occurrence: None)
  Receive Date: 20090413
  Receipt Date: 20090406
  Transmission Date: 20091009
  Serious: Yes (Hospitalization)
  Sender: FDA-Public Use
  Company Number: US-MERCK-0902USA03771

PATIENT
  Age: 72 Year
  Sex: Female

DRUGS (7)
  1. PEPCID [Suspect]
     Indication: PEPTIC ULCER
     Route: 048
  2. ESOMEPRAZOLE [Suspect]
     Indication: PEPTIC ULCER
     Route: 048
  3. ALFALFA [Concomitant]
     Route: 065
  4. GINGER [Concomitant]
     Route: 065
  5. GINSENG (UNSPECIFIED) [Concomitant]
     Route: 065
  6. GINKGO [Concomitant]
     Route: 065
  7. ECHINACEA (UNSPECIFIED) [Concomitant]
     Route: 065

REACTIONS (3)
  - ANAEMIA [None]
  - DELIRIUM [None]
  - VITAMIN B12 DEFICIENCY [None]
